FAERS Safety Report 21916976 (Version 2)
Quarter: 2023Q2

REPORT INFORMATION
  Report Type: Spontaneous
  Country: US (occurrence: US)
  Receive Date: 20230126
  Receipt Date: 20230628
  Transmission Date: 20230721
  Serious: Yes (Other)
  Sender: FDA-Public Use
  Company Number: US-JNJFOC-20230146870

PATIENT
  Age: 4 Year
  Sex: Female

DRUGS (10)
  1. TYLENOL REGULAR STRENGTH [Suspect]
     Active Substance: ACETAMINOPHEN
     Indication: Headache
     Dosage: BOTTLE OR PACKAGING SIZE (I.E., NUMBER OF PILLS) WAS 200 PILLS IN BOTTLE AS 07 OR MORE TIMES PER WEE
     Route: 064
     Dates: start: 201610, end: 201707
  2. TYLENOL REGULAR STRENGTH [Suspect]
     Active Substance: ACETAMINOPHEN
     Indication: Back pain
  3. TYLENOL REGULAR STRENGTH [Suspect]
     Active Substance: ACETAMINOPHEN
     Indication: Pain
  4. TYLENOL EXTRA STRENGTH [Suspect]
     Active Substance: ACETAMINOPHEN
     Indication: Headache
     Dosage: BOTTLE OR PACKAGING SIZE (I.E., NUMBER OF PILLS) WAS 200 PILLS IN BOTTLE, WAS IN HER FIRST, SECOND A
     Route: 064
     Dates: start: 201610, end: 201707
  5. TYLENOL EXTRA STRENGTH [Suspect]
     Active Substance: ACETAMINOPHEN
     Indication: Back pain
  6. TYLENOL EXTRA STRENGTH [Suspect]
     Active Substance: ACETAMINOPHEN
     Indication: Pain
  7. TYLENOL [Suspect]
     Active Substance: ACETAMINOPHEN
     Indication: Headache
     Dosage: RAPID RELEASE GELS, BOTTLE OR PACKAGING SIZE (I.E., NUMBER OF PILLS) WAS 200 PILLS IN BOTTLE, WAS IN
     Route: 064
     Dates: start: 201610, end: 201707
  8. TYLENOL [Suspect]
     Active Substance: ACETAMINOPHEN
     Indication: Back pain
  9. TYLENOL [Suspect]
     Active Substance: ACETAMINOPHEN
     Indication: Pain
  10. DIHYDROXYALUMINUM SODIUM CARBONATE [Concomitant]
     Active Substance: DIHYDROXYALUMINUM SODIUM CARBONATE
     Indication: Dyspepsia
     Dosage: AS DAILY
     Route: 065

REACTIONS (2)
  - Autism spectrum disorder [Unknown]
  - Foetal exposure during pregnancy [Unknown]

NARRATIVE: CASE EVENT DATE: 20220616
